FAERS Safety Report 5585192-3 (Version None)
Quarter: 2008Q1

REPORT INFORMATION
  Report Type: 
  Country: None (occurrence: None)
  Receive Date: 20080109
  Receipt Date: 20071231
  Transmission Date: 20080703
  Serious: Yes (Hospitalization)
  Sender: FDA-Public Use
  Company Number: PHRM2007FR02915

PATIENT
  Age: 89 Year
  Sex: Female

DRUGS (3)
  1. FRACTAL [Suspect]
     Indication: HYPERCHOLESTEROLAEMIA
     Dosage: 20 MG, QD
     Route: 048
     Dates: end: 20070911
  2. COAPROVEL [Suspect]
     Indication: HYPERTENSION
     Dosage: 300 MG PER DAY
     Route: 048
     Dates: start: 20070215, end: 20070911
  3. ZANIDIP [Suspect]
     Indication: HYPERTENSION
     Dosage: 20 MG PER DAY
     Route: 048
     Dates: end: 20070911

REACTIONS (7)
  - ANAEMIA [None]
  - BACK PAIN [None]
  - BLOOD CREATININE INCREASED [None]
  - DEPRESSION [None]
  - GENERAL PHYSICAL HEALTH DETERIORATION [None]
  - LEUKOCYTURIA [None]
  - NEPHRITIS INTERSTITIAL [None]
